FAERS Safety Report 7112769-6 (Version None)
Quarter: 2010Q4

REPORT INFORMATION
  Report Type: 
  Country: None (occurrence: None)
  Receive Date: 20101119
  Receipt Date: 20101108
  Transmission Date: 20110411
  Serious: Yes (Other)
  Sender: FDA-Public Use
  Company Number: US-JNJFOC-20101105735

PATIENT
  Age: 31 Year
  Sex: Female

DRUGS (5)
  1. RISPERDAL [Suspect]
     Indication: POST-TRAUMATIC STRESS DISORDER
     Dosage: 1 MG IN THE MORNING AND 2 MG IN THE EVENING
     Route: 065
  2. SEROQUEL [Suspect]
     Indication: POST-TRAUMATIC STRESS DISORDER
     Route: 065
  3. TOPAMAX [Concomitant]
     Indication: POST-TRAUMATIC STRESS DISORDER
     Dosage: 50 MG IN THE MORNING AND 200 MG IN THE EVENING
     Route: 065
  4. CLONAZEPAM [Concomitant]
     Indication: POST-TRAUMATIC STRESS DISORDER
     Route: 065
  5. EFFEXOR [Concomitant]
     Indication: POST-TRAUMATIC STRESS DISORDER
     Dosage: 50 MG IN THE MORNING AND 200 MG IN THE EVENING
     Route: 065

REACTIONS (4)
  - ELECTROCARDIOGRAM QT PROLONGED [None]
  - HEART RATE INCREASED [None]
  - OVERDOSE [None]
  - SOMNOLENCE [None]
